FAERS Safety Report 18910797 (Version 13)
Quarter: 2022Q1

REPORT INFORMATION
  Report Type: Report from Study
  Country: AR (occurrence: AR)
  Receive Date: 20210218
  Receipt Date: 20220222
  Transmission Date: 20220423
  Serious: Yes (Hospitalization, Other)
  Sender: FDA-Public Use
  Company Number: AR-TAKEDA-2021TUS003529

PATIENT
  Age: 50 Year
  Sex: Male
  Weight: 78 kg

DRUGS (11)
  1. BRIGATINIB [Suspect]
     Active Substance: BRIGATINIB
     Indication: Lung neoplasm malignant
     Dosage: 180 MILLIGRAM, QD
     Route: 065
     Dates: start: 20210107
  2. ATENOLOL [Concomitant]
     Active Substance: ATENOLOL
     Indication: Aortic valve replacement
     Dosage: UNK
     Route: 065
  3. ACENOCOUMAROL [Concomitant]
     Active Substance: ACENOCOUMAROL
     Indication: Aortic valve replacement
     Dosage: UNK
     Route: 065
  4. ACENOCOUMAROL [Concomitant]
     Active Substance: ACENOCOUMAROL
     Indication: Anticoagulant therapy
  5. ENOXAPARIN [Concomitant]
     Active Substance: ENOXAPARIN
     Indication: Aortic valve replacement
     Dosage: 80 MILLIGRAM, QD
     Route: 065
  6. ENOXAPARIN [Concomitant]
     Active Substance: ENOXAPARIN
     Indication: Anticoagulant therapy
  7. BUPROPION [Concomitant]
     Active Substance: BUPROPION
     Indication: Tobacco abuse
     Dosage: 300 MILLIGRAM, QD
     Route: 065
  8. DEXAMETHASONE [Concomitant]
     Active Substance: DEXAMETHASONE
     Indication: Metastases to central nervous system
     Dosage: 24 MILLIGRAM, QD
     Route: 065
  9. DEXAMETHASONE [Concomitant]
     Active Substance: DEXAMETHASONE
     Dosage: 8 MILLIGRAM, QD
     Route: 065
  10. MINOCYCLINE [Concomitant]
     Active Substance: MINOCYCLINE HYDROCHLORIDE
     Indication: Paronychia
     Dosage: 100 MILLIGRAM, QD
     Route: 048
  11. MINOCYCLINE [Concomitant]
     Active Substance: MINOCYCLINE HYDROCHLORIDE
     Dosage: 180 MILLIGRAM
     Route: 065
     Dates: start: 20210107

REACTIONS (10)
  - Thrombocytopenia [Recovered/Resolved]
  - Haematuria [Recovered/Resolved]
  - Aspartate aminotransferase increased [Recovered/Resolved]
  - Lipase increased [Recovered/Resolved]
  - Dermatitis acneiform [Recovering/Resolving]
  - Alanine aminotransferase increased [Recovered/Resolved]
  - Hyperamylasaemia [Recovered/Resolved]
  - Paronychia [Recovered/Resolved]
  - Blood cholesterol increased [Recovering/Resolving]
  - Hyperglycaemia [Recovered/Resolved]

NARRATIVE: CASE EVENT DATE: 20210111
